FAERS Safety Report 19248418 (Version 1)
Quarter: 2021Q2

REPORT INFORMATION
  Report Type: Spontaneous
  Country: US (occurrence: US)
  Receive Date: 20210512
  Receipt Date: 20210512
  Transmission Date: 20210717
  Serious: Yes (Other)
  Sender: FDA-Public Use
  Company Number: US-SLATE RUN PHARMACEUTICALS-21US000483

PATIENT

DRUGS (6)
  1. OTHER THERAPEUTIC PRODUCTS [Concomitant]
     Active Substance: UNSPECIFIED INGREDIENT
     Indication: STAPHYLOCOCCAL SEPSIS
  2. VANCOMYCIN HYDROCHLORIDE USP [Suspect]
     Active Substance: VANCOMYCIN HYDROCHLORIDE
     Indication: STAPHYLOCOCCAL SEPSIS
  3. OTHER THERAPEUTIC PRODUCTS [Concomitant]
     Active Substance: UNSPECIFIED INGREDIENT
     Indication: HYPERGLYCAEMIC HYPEROSMOLAR NONKETOTIC SYNDROME
     Route: 065
  4. OTHER THERAPEUTIC PRODUCTS [Concomitant]
     Active Substance: UNSPECIFIED INGREDIENT
     Indication: SEPTIC SHOCK
     Route: 065
  5. INSULIN [Concomitant]
     Active Substance: INSULIN NOS
     Indication: HYPERGLYCAEMIC HYPEROSMOLAR NONKETOTIC SYNDROME
     Route: 065
  6. VANCOMYCIN HYDROCHLORIDE USP [Suspect]
     Active Substance: VANCOMYCIN HYDROCHLORIDE
     Indication: SEPTIC SHOCK
     Route: 065

REACTIONS (5)
  - Embolic stroke [Recovered/Resolved]
  - Neuropathy peripheral [Recovered/Resolved]
  - Urinary retention [Recovered/Resolved]
  - Rash [Unknown]
  - Mental status changes [Recovered/Resolved]
